FAERS Safety Report 6124842-X (Version None)
Quarter: 2009Q1

REPORT INFORMATION
  Report Type: 
  Country: None (occurrence: None)
  Receive Date: 20090319
  Receipt Date: 20090309
  Transmission Date: 20090719
  Serious: Yes (Other)
  Sender: FDA-Public Use
  Company Number: US-PFIZER INC-2009180123

PATIENT
  Age: 84 Year
  Sex: Female

DRUGS (1)
  1. HEPARIN SODIUM [Suspect]

REACTIONS (4)
  - HEPARIN-INDUCED THROMBOCYTOPENIA [None]
  - HYPOTENSION [None]
  - PULMONARY CONGESTION [None]
  - THROMBOSIS IN DEVICE [None]
